FAERS Safety Report 6920357-7 (Version None)
Quarter: 2010Q3

REPORT INFORMATION
  Report Type: 
  Country: None (occurrence: None)
  Receive Date: 20100803
  Receipt Date: 20090904
  Transmission Date: 20110219
  Serious: Yes (Hospitalization, Other)
  Sender: FDA-Public Use
  Company Number: 2009SP024005

PATIENT
  Age: 29 Year
  Sex: Female

DRUGS (2)
  1. INTRON A [Suspect]
     Indication: PRODUCT USED FOR UNKNOWN INDICATION
  2. GARDASIL [Concomitant]

REACTIONS (7)
  - ASTHENIA [None]
  - CHILLS [None]
  - HEADACHE [None]
  - HYPERTENSION [None]
  - INFLUENZA LIKE ILLNESS [None]
  - NYSTAGMUS [None]
  - PYREXIA [None]
